FAERS Safety Report 8115259-7 (Version None)
Quarter: 2012Q1

REPORT INFORMATION
  Report Type: 
  Country: None (occurrence: None)
  Receive Date: 20120201
  Receipt Date: 20120108
  Transmission Date: 20120608
  Serious: Yes (Other)
  Sender: FDA-Public Use
  Company Number: 54973E RAE010812EF001

PATIENT
  Sex: Female

DRUGS (1)
  1. HYLAND'S TEETHING TABLETS [Suspect]
     Indication: TEETHING

REACTIONS (1)
  - CONVULSION [None]
